FAERS Safety Report 5592159-8 (Version None)
Quarter: 2008Q1

REPORT INFORMATION
  Report Type: 
  Country: None (occurrence: None)
  Receive Date: 20080115
  Receipt Date: 20071011
  Transmission Date: 20080703
  Serious: No
  Sender: FDA-Public Use
  Company Number: US-ABBOTT-07P-163-0420264-00

PATIENT
  Sex: Male
  Weight: 92.162 kg

DRUGS (1)
  1. ADVICOR [Suspect]
     Indication: BLOOD CHOLESTEROL INCREASED
     Dosage: TOTAL DAILY DOSE:  500/20 MG, UNIT DOSE:  500/20 MG, ONE TABLET
     Route: 048
     Dates: start: 20071008, end: 20071011

REACTIONS (3)
  - ABDOMINAL PAIN UPPER [None]
  - COUGH [None]
  - PARAESTHESIA [None]
